FAERS Safety Report 7508475-6 (Version None)
Quarter: 2011Q2

REPORT INFORMATION
  Report Type: 
  Country: None (occurrence: None)
  Receive Date: 20110527
  Receipt Date: 20110523
  Transmission Date: 20111010
  Serious: Yes (Life-Threatening)
  Sender: FDA-Public Use
  Company Number: FR-PFIZER INC-2011104025

PATIENT
  Age: 62 Year
  Sex: Female

DRUGS (4)
  1. ZYVOX [Suspect]
     Indication: PNEUMONIA
     Dosage: 600 MG, 2X/DAY
     Route: 042
     Dates: start: 20110421, end: 20110421
  2. AMIKACIN [Suspect]
     Indication: PNEUMONIA
     Dosage: 1.5 G, 1X/DAY
     Route: 042
     Dates: start: 20110421, end: 20110421
  3. PRIMPERAN TAB [Suspect]
     Dosage: UNK
     Route: 042
     Dates: start: 20110408, end: 20110421
  4. PIPERACILLIN AND TAZOBACTAM [Suspect]
     Indication: PNEUMONIA
     Dosage: 4 G, 4X/DAY
     Route: 042
     Dates: start: 20110421, end: 20110421

REACTIONS (2)
  - CARDIAC ARREST [None]
  - ANAPHYLACTIC SHOCK [None]
